FAERS Safety Report 5752309-7 (Version None)
Quarter: 2008Q2

REPORT INFORMATION
  Report Type: 
  Country: None (occurrence: None)
  Receive Date: 20080529
  Receipt Date: 20080528
  Transmission Date: 20081010
  Serious: Yes (Hospitalization)
  Sender: FDA-Public Use
  Company Number: A0729920A

PATIENT
  Age: 26 Year
  Sex: Female

DRUGS (1)
  1. ALLI [Suspect]
     Dates: start: 20080501, end: 20080524

REACTIONS (11)
  - ANAEMIA [None]
  - ASTHENIA [None]
  - CARDIOVASCULAR DISORDER [None]
  - EYE INFECTION [None]
  - EYE SWELLING [None]
  - FLATULENCE [None]
  - HEADACHE [None]
  - HEART RATE INCREASED [None]
  - LOSS OF CONSCIOUSNESS [None]
  - OXYGEN SATURATION DECREASED [None]
  - RED BLOOD CELL COUNT DECREASED [None]
